FAERS Safety Report 5945602-6 (Version None)
Quarter: 2008Q4

REPORT INFORMATION
  Report Type: 
  Country: None (occurrence: None)
  Receive Date: 20081107
  Receipt Date: 20081029
  Transmission Date: 20090506
  Serious: Yes (Disabling)
  Sender: FDA-Public Use
  Company Number: JP-PFIZER INC-2008091304

PATIENT
  Sex: Female

DRUGS (3)
  1. SOLU-CORTEF [Suspect]
     Dosage: DAILY DOSE:100MG
     Route: 042
     Dates: start: 20081020, end: 20081021
  2. NEUROTROPIN [Suspect]
     Dosage: TEXT:8 TABLETS
     Route: 048
     Dates: start: 20081020, end: 20081020
  3. CYANOCOBALAMIN [Suspect]
     Dosage: TEXT:9 TABLETS
     Route: 048
     Dates: start: 20081020, end: 20081020

REACTIONS (4)
  - ERYTHEMA [None]
  - JOINT SWELLING [None]
  - PETECHIAE [None]
  - SPINAL CORD OEDEMA [None]
